FAERS Safety Report 11328834 (Version 1)
Quarter: 2015Q3

REPORT INFORMATION
  Report Type: Spontaneous
  Country: US (occurrence: US)
  Receive Date: 20150731
  Receipt Date: 20150731
  Transmission Date: 20151125
  Serious: No
  Sender: FDA-Public Use
  Company Number: US-009507513-1507USA012711

PATIENT
  Sex: Male

DRUGS (1)
  1. NASONEX [Suspect]
     Active Substance: MOMETASONE FUROATE
     Dosage: UNK, PRN
     Route: 045

REACTIONS (3)
  - Inappropriate schedule of drug administration [Unknown]
  - Product quality issue [Unknown]
  - No adverse event [Unknown]
